FAERS Safety Report 5285992-3 (Version None)
Quarter: 2007Q1

REPORT INFORMATION
  Report Type: 
  Country: None (occurrence: None)
  Receive Date: 20070328
  Receipt Date: 20070322
  Transmission Date: 20070707
  Serious: Yes (Hospitalization)
  Sender: FDA-Public Use
  Company Number: 13688213

PATIENT
  Age: 68 Year
  Sex: Female

DRUGS (5)
  1. EMSAM [Suspect]
     Dosage: TD
     Dates: start: 20061018, end: 20070201
  2. ALBUTEROL [Concomitant]
  3. ATROVENT [Concomitant]
  4. ADVAIR DISKUS 100/50 [Concomitant]
  5. ATIVAN [Concomitant]

REACTIONS (6)
  - NASAL CONGESTION [None]
  - PHARYNGITIS [None]
  - PNEUMONIA [None]
  - POSTNASAL DRIP [None]
  - SPUTUM CULTURE POSITIVE [None]
  - STAPHYLOCOCCAL INFECTION [None]
